FAERS Safety Report 10202391 (Version 2)
Quarter: 2014Q2

REPORT INFORMATION
  Report Type: Spontaneous
  Country: US (occurrence: US)
  Receive Date: 20140528
  Receipt Date: 20140530
  Transmission Date: 20141212
  Serious: Yes (Other)
  Sender: FDA-Public Use
  Company Number: US-TEVA-484525USA

PATIENT
  Age: 41 Year
  Sex: Female
  Weight: 57.2 kg

DRUGS (2)
  1. PARAGARD 380A [Suspect]
     Indication: CONTRACEPTION
     Route: 015
     Dates: start: 200411, end: 20140523
  2. PARAGARD 380A [Suspect]
     Route: 015
     Dates: start: 20140523, end: 20140523

REACTIONS (3)
  - Embedded device [Not Recovered/Not Resolved]
  - Device breakage [Not Recovered/Not Resolved]
  - Device dislocation [Recovered/Resolved]
